FAERS Safety Report 8282458-3 (Version None)
Quarter: 2012Q2

REPORT INFORMATION
  Report Type: 
  Country: None (occurrence: None)
  Receive Date: 20120411
  Receipt Date: 20120328
  Transmission Date: 20120825
  Serious: Yes (Other)
  Sender: FDA-Public Use
  Company Number: US-1191422

PATIENT
  Age: 63 Year
  Sex: Female

DRUGS (1)
  1. BSS [Suspect]
     Dosage: (INTRAOCULAR)
     Route: 031
     Dates: start: 20120327, end: 20120327

REACTIONS (1)
  - TOXIC ANTERIOR SEGMENT SYNDROME [None]
